FAERS Safety Report 4785893-0 (Version None)
Quarter: 2005Q3

REPORT INFORMATION
  Report Type: 
  Country: None (occurrence: None)
  Receive Date: 20050929
  Receipt Date: 20050914
  Transmission Date: 20060218
  Serious: Yes (Life-Threatening, Hospitalization)
  Sender: FDA-Public Use
  Company Number: 0205042

PATIENT
  Age: 75 Year
  Sex: Female

DRUGS (1)
  1. DEPODUR [Suspect]
     Indication: POSTOPERATIVE ANALGESIA
     Dosage: 10 OR 15 MG (ONCE), EPIDURAL
     Route: 008
     Dates: start: 20050908, end: 20050908

REACTIONS (11)
  - ANXIETY [None]
  - CHEST DISCOMFORT [None]
  - CHEST PAIN [None]
  - CONSCIOUSNESS FLUCTUATING [None]
  - DISORIENTATION [None]
  - DRUG HYPERSENSITIVITY [None]
  - ELECTROCARDIOGRAM CHANGE [None]
  - NAUSEA [None]
  - PRURITUS [None]
  - RESPIRATORY DEPRESSION [None]
  - SEDATION [None]
